FAERS Safety Report 5152573-1 (Version None)
Quarter: 2006Q4

REPORT INFORMATION
  Report Type: 
  Country: None (occurrence: None)
  Receive Date: 20061109
  Receipt Date: 20061025
  Transmission Date: 20070319
  Serious: Yes (Hospitalization)
  Sender: FDA-Public Use
  Company Number: DE-2006-032649

PATIENT
  Sex: Female

DRUGS (1)
  1. BETAFERON(INTERFERON BETA-1B) INJECTION, 250UG [Suspect]
     Indication: DRUG USE FOR UNKNOWN INDICATION
     Dosage: SUBCUTANEOUS
     Route: 058
     Dates: start: 20051201

REACTIONS (3)
  - AORTIC DISORDER [None]
  - CAROTID ARTERY DISEASE [None]
  - SALIVARY GLAND ENLARGEMENT [None]
